FAERS Safety Report 8555516-3 (Version None)
Quarter: 2012Q3

REPORT INFORMATION
  Report Type: 
  Country: None (occurrence: None)
  Receive Date: 20120731
  Receipt Date: 20120316
  Transmission Date: 20120928
  Serious: No
  Sender: FDA-Public Use
  Company Number: US-ASTRAZENECA-2011SE19598

PATIENT
  Age: 65 Year
  Sex: Female

DRUGS (14)
  1. WELLBUTRIN XL [Concomitant]
     Dosage: 300+350 MG EVERY MORNING
  2. DYAZIDE [Concomitant]
     Dosage: HCTZ 25 MG, ONE PER DAY
  3. SIMVASTATIN [Concomitant]
  4. SEROQUEL XR [Suspect]
     Indication: BIPOLAR DISORDER
     Route: 048
     Dates: start: 20100921, end: 20110329
  5. SEROQUEL XR [Suspect]
     Route: 048
     Dates: start: 20110331
  6. LAMOTRIGINE [Concomitant]
  7. VITAMIN D [Concomitant]
  8. VITAMIN B COMPLEX CAP [Concomitant]
     Dosage: DAILY
  9. MULTI-VITAMIN [Concomitant]
     Dosage: DAILY
  10. FISH OIL [Concomitant]
  11. CYMBALTA [Concomitant]
  12. AMBIEN [Concomitant]
  13. SEROQUEL XR [Suspect]
     Route: 048
     Dates: start: 20110330
  14. NORVASC [Concomitant]

REACTIONS (3)
  - EYE DISORDER [None]
  - INTENTIONAL DRUG MISUSE [None]
  - CATARACT [None]
